FAERS Safety Report 14717844 (Version 2)
Quarter: 2019Q2

REPORT INFORMATION
  Report Type: Spontaneous
  Country: US (occurrence: US)
  Receive Date: 20180404
  Receipt Date: 20190611
  Transmission Date: 20190711
  Serious: Yes (Other)
  Sender: FDA-Public Use
  Company Number: US-SA-2018SA032506

PATIENT
  Age: 39 Year
  Sex: Male
  Weight: 106.5 kg

DRUGS (3)
  1. DIPROLENE [Concomitant]
     Active Substance: BETAMETHASONE DIPROPIONATE
     Indication: DERMATITIS
     Dosage: UNK UNK,QD
     Route: 065
     Dates: start: 2016
  2. DUPIXENT [Suspect]
     Active Substance: DUPILUMAB
     Indication: DERMATITIS ATOPIC
     Dosage: 300 MG,QOW
     Route: 058
     Dates: start: 20170901
  3. HYDROCORTISONE ACETATE. [Concomitant]
     Active Substance: HYDROCORTISONE ACETATE
     Indication: DERMATITIS
     Dosage: UNK UNK,QD
     Route: 065
     Dates: start: 20150624

REACTIONS (3)
  - Keratitis [Recovering/Resolving]
  - Blepharitis [Unknown]
  - Eye irritation [Unknown]

NARRATIVE: CASE EVENT DATE: 20170915
